FAERS Safety Report 18729858 (Version 1)
Quarter: 2021Q1

REPORT INFORMATION
  Report Type: Spontaneous
  Country: US (occurrence: US)
  Receive Date: 20210112
  Receipt Date: 20210112
  Transmission Date: 20210419
  Serious: Yes (Life-Threatening)
  Sender: FDA-Public Use
  Company Number: None

PATIENT
  Age: 39 Year
  Sex: Male
  Weight: 57.15 kg

DRUGS (1)
  1. CLONAZEPAM. [Suspect]
     Active Substance: CLONAZEPAM
     Indication: SLEEP DISORDER THERAPY
     Dosage: ?          QUANTITY:1 TABLET(S);?
     Route: 048
     Dates: start: 20210107, end: 20210111

REACTIONS (8)
  - Mental disorder [None]
  - Dizziness [None]
  - Suicidal ideation [None]
  - Dyspnoea [None]
  - Mood swings [None]
  - Depression [None]
  - Affective disorder [None]
  - Self-injurious ideation [None]

NARRATIVE: CASE EVENT DATE: 20210111
